FAERS Safety Report 5959026-9 (Version None)
Quarter: 2008Q4

REPORT INFORMATION
  Report Type: 
  Country: None (occurrence: None)
  Receive Date: 20081119
  Receipt Date: 20081119
  Transmission Date: 20090506
  Serious: Yes (Hospitalization, Other)
  Sender: FDA-Public Use
  Company Number: None

PATIENT
  Age: 11 Year
  Sex: Female

DRUGS (1)
  1. TUBERSOL [Suspect]
     Dosage: 0.1ML/INTERDERMAL/L FOREMARM
     Route: 023

REACTIONS (1)
  - GRAND MAL CONVULSION [None]
